FAERS Safety Report 6694848-0 (Version None)
Quarter: 2010Q2

REPORT INFORMATION
  Report Type: 
  Country: None (occurrence: None)
  Receive Date: 20100423
  Receipt Date: 20100413
  Transmission Date: 20101027
  Serious: Yes (Other)
  Sender: FDA-Public Use
  Company Number: US-WYE-H14568710

PATIENT
  Sex: Female

DRUGS (1)
  1. PRISTIQ [Suspect]
     Dosage: TAKING UNKNOWN DOSE EVERY OTHER DAY
     Dates: start: 20100101

REACTIONS (1)
  - SUICIDAL IDEATION [None]
